FAERS Safety Report 6097987-0 (Version None)
Quarter: 2009Q1

REPORT INFORMATION
  Report Type: 
  Country: None (occurrence: None)
  Receive Date: 20090227
  Receipt Date: 20090219
  Transmission Date: 20090719
  Serious: Yes (Hospitalization, Other)
  Sender: FDA-Public Use
  Company Number: CA-ABBOTT-06P-028-0326186-00

PATIENT
  Sex: Female
  Weight: 67 kg

DRUGS (5)
  1. HUMIRA [Suspect]
     Indication: CROHN'S DISEASE
     Route: 058
     Dates: start: 20030718, end: 20060210
  2. NARATRIPTAN HYDROCHLORIDE [Concomitant]
     Indication: MIGRAINE
     Dates: start: 19981001
  3. HYDROCORTISONE [Concomitant]
     Indication: ECZEMA
     Dosage: ONE APPLICATION
     Dates: start: 20030501
  4. TEARS NATURALE [Concomitant]
     Indication: DRY EYE
     Dosage: 3 GTTS EACH EYE
     Dates: start: 20020901
  5. NAPROXEN [Concomitant]
     Indication: MENSTRUAL DISCOMFORT
     Dates: start: 19960501

REACTIONS (2)
  - HEPATIC LESION [None]
  - LANGERHANS' CELL GRANULOMATOSIS [None]
